FAERS Safety Report 13932813 (Version 2)
Quarter: 2017Q4

REPORT INFORMATION
  Report Type: Report from Study
  Country: BR (occurrence: BR)
  Receive Date: 20170904
  Receipt Date: 20171206
  Transmission Date: 20180320
  Serious: Yes (Hospitalization, Other)
  Sender: FDA-Public Use
  Company Number: BR-JNJFOC-20170829082

PATIENT
  Age: 53 Year
  Sex: Female
  Weight: 74 kg

DRUGS (4)
  1. PREGABALIN. [Concomitant]
     Active Substance: PREGABALIN
     Route: 065
  2. SIMPONI [Suspect]
     Active Substance: GOLIMUMAB
     Indication: ANKYLOSING SPONDYLITIS
     Route: 058
     Dates: start: 20170713
  3. NITRAZEPAN [Concomitant]
     Route: 065
  4. CLONAZEPAN [Concomitant]
     Active Substance: CLONAZEPAM
     Route: 065

REACTIONS (4)
  - Swelling [Not Recovered/Not Resolved]
  - Device related infection [Unknown]
  - Fatigue [Unknown]
  - Complication associated with device [Unknown]

NARRATIVE: CASE EVENT DATE: 20170713
